FAERS Safety Report 8808387 (Version 1)
Quarter: 2012Q4

REPORT INFORMATION
  Report Type: 
  Country: US (occurrence: None)
  Receive Date: 20120920
  Receipt Date: 20120920
  Transmission Date: 20130627
  Serious: Yes (Other)
  Sender: FDA-Public Use
  Company Number: B0831263A

PATIENT

DRUGS (1)
  1. LAPATINIB [Suspect]
     Indication: ENDOMETRIAL CANCER
     Dosage: 1500 MG / Per day / Oral
     Route: 048

REACTIONS (4)
  - Blood creatinine increased [None]
  - Febrile neutropenia [None]
  - Thrombocytopenia [None]
  - Toxicity to various agents [None]
